FAERS Safety Report 5236264-4 (Version None)
Quarter: 2007Q1

REPORT INFORMATION
  Report Type: 
  Country: None (occurrence: None)
  Receive Date: 20070212
  Receipt Date: 20070202
  Transmission Date: 20070707
  Serious: Yes (Life-Threatening)
  Sender: FDA-Public Use
  Company Number: FR-ABBOTT-07P-056-0358312-00

PATIENT
  Sex: Male

DRUGS (3)
  1. HUMIRA [Suspect]
     Indication: RHEUMATOID ARTHRITIS
     Route: 058
     Dates: start: 20050601
  2. RISEDRONATE MONOSODIQUE [Suspect]
     Indication: OSTEOPOROSIS
     Route: 048
     Dates: start: 20030101
  3. PREDNISONE [Suspect]
     Indication: RHEUMATOID ARTHRITIS
     Route: 048
     Dates: start: 20030101

REACTIONS (4)
  - AMYOTROPHIC LATERAL SCLEROSIS [None]
  - CHOKING [None]
  - GENERAL PHYSICAL CONDITION ABNORMAL [None]
  - WEIGHT DECREASED [None]
